FAERS Safety Report 7453266-8 (Version None)
Quarter: 2011Q2

REPORT INFORMATION
  Report Type: 
  Country: None (occurrence: None)
  Receive Date: 20110502
  Receipt Date: 20101202
  Transmission Date: 20111010
  Serious: No
  Sender: FDA-Public Use
  Company Number: US-ASTRAZENECA-2010SE57445

PATIENT
  Sex: Female

DRUGS (6)
  1. NEXIUM [Suspect]
     Indication: GASTROOESOPHAGEAL REFLUX DISEASE
     Route: 048
     Dates: start: 20080101, end: 20100101
  2. GABAPENTIN [Concomitant]
  3. DOXAZOSIN MESYLATE [Concomitant]
  4. ALLEGRA [Concomitant]
  5. NEXIUM [Suspect]
     Route: 048
     Dates: start: 20100101
  6. LISINOPRIL [Concomitant]

REACTIONS (4)
  - VOCAL CORD DISORDER [None]
  - DRUG DOSE OMISSION [None]
  - GASTROOESOPHAGEAL REFLUX DISEASE [None]
  - STOMATITIS [None]
